FAERS Safety Report 9371624 (Version 1)
Quarter: 2013Q2

REPORT INFORMATION
  Report Type: Spontaneous
  Country: AU (occurrence: AU)
  Receive Date: 20130627
  Receipt Date: 20130627
  Transmission Date: 20140414
  Serious: Yes (Other)
  Sender: FDA-Public Use
  Company Number: PHHY2013AU065669

PATIENT
  Age: 16 Year
  Sex: Female

DRUGS (5)
  1. TRILEPTAL [Suspect]
     Dosage: UNK UKN, UNK
  2. FRISIUM [Concomitant]
     Dosage: UNK UKN, UNK
  3. LAMICTAL [Concomitant]
     Dosage: UNK UKN, UNK
  4. MICROGYNON [Concomitant]
     Dosage: UNK UKN, UNK
  5. ZYPREXA [Concomitant]
     Dosage: UNK UKN, UNK

REACTIONS (1)
  - Inappropriate antidiuretic hormone secretion [Unknown]
